FAERS Safety Report 5266716-2 (Version None)
Quarter: 2007Q1

REPORT INFORMATION
  Report Type: 
  Country: None (occurrence: None)
  Receive Date: 20070312
  Receipt Date: 20070227
  Transmission Date: 20070707
  Serious: Yes (Hospitalization)
  Sender: FDA-Public Use
  Company Number: 153674ISR

PATIENT
  Age: 63 Year
  Sex: Female

DRUGS (4)
  1. MELOXICAM [Suspect]
     Indication: RHEUMATOID ARTHRITIS
     Dosage: 15 MG (15 MG, 1 IN 1 D)
     Route: 048
     Dates: end: 20070130
  2. PREDNISOLONE [Suspect]
     Dosage: 5 MG (5 MG, 1 IN 1 D)
  3. ACETYLSALICYLIC ACID SRT [Suspect]
     Dosage: 75 MG (75 MG, 1 IN 1 D)
     Route: 048
  4. RISEDRONATE SODIUM [Suspect]
     Dosage: 35 MG, 1 IN 1 WK

REACTIONS (6)
  - BARRETT'S OESOPHAGUS [None]
  - CHEST PAIN [None]
  - DUODENAL ULCER [None]
  - DUODENITIS [None]
  - HELICOBACTER PYLORI IDENTIFICATION TEST POSITIVE [None]
  - VOMITING [None]
